FAERS Safety Report 5941812-2 (Version None)
Quarter: 2008Q4

REPORT INFORMATION
  Report Type: 
  Country: None (occurrence: None)
  Receive Date: 20081105
  Receipt Date: 20081031
  Transmission Date: 20090506
  Serious: Yes (Hospitalization, Other)
  Sender: FDA-Public Use
  Company Number: PHHY2008BR24894

PATIENT
  Sex: Male
  Weight: 70 kg

DRUGS (5)
  1. TRILEPTAL [Suspect]
     Indication: BIPOLAR DISORDER
     Dosage: 150 MG, UNK
  2. TRILEPTAL [Suspect]
     Indication: AFFECTIVE DISORDER
     Dosage: 300 MG, 1 TABLET DAILY
     Dates: start: 20081007
  3. QUETIAPINE FUMARATE [Concomitant]
     Indication: BIPOLAR DISORDER
  4. CLONAZEPAM [Concomitant]
     Dosage: 8 MG, UNK
  5. TOPIRAMATE [Concomitant]
     Dosage: 300 MG, UNK

REACTIONS (7)
  - ERECTILE DYSFUNCTION [None]
  - MUSCLE DISORDER [None]
  - PENILE DYSPLASIA [None]
  - PRIAPISM [None]
  - SEXUAL DYSFUNCTION [None]
  - VASCULAR OPERATION [None]
  - WOUND DRAINAGE [None]
